FAERS Safety Report 21059722 (Version 3)
Quarter: 2022Q3

REPORT INFORMATION
  Report Type: Report from Study
  Country: DE (occurrence: DE)
  Receive Date: 20220708
  Receipt Date: 20220912
  Transmission Date: 20221027
  Serious: Yes (Other)
  Sender: FDA-Public Use
  Company Number: DE-ROCHE-3122777

PATIENT
  Age: 56 Year
  Sex: Female
  Weight: 73 kg

DRUGS (2)
  1. TRASTUZUMAB [Suspect]
     Active Substance: TRASTUZUMAB
     Indication: Breast cancer
     Dosage: 430 MILLIGRAM, Q3W (LAST DOSE PRIOR EVENT (MG) 430)
     Route: 042
     Dates: start: 20220125, end: 20220225
  2. PERJETA [Suspect]
     Active Substance: PERTUZUMAB
     Indication: Breast cancer
     Dosage: 420 MILLIGRAM, Q3W (LAST DOSE PRIOR EVENT (MG)420  )
     Route: 042
     Dates: start: 20220125, end: 20220225

REACTIONS (3)
  - Ventricular hypokinesia [Recovered/Resolved]
  - Cardiac dysfunction [Recovered/Resolved]
  - Dyspnoea [Recovered/Resolved]

NARRATIVE: CASE EVENT DATE: 20220221
